FAERS Safety Report 10527980 (Version 1)
Quarter: 2014Q4

REPORT INFORMATION
  Report Type: Spontaneous
  Country: US (occurrence: US)
  Receive Date: 20141020
  Receipt Date: 20141020
  Transmission Date: 20150528
  Serious: Yes (Other)
  Sender: FDA-Public Use
  Company Number: US-MYLANLABS-2014M1007657

PATIENT

DRUGS (9)
  1. HEPARIN [Suspect]
     Active Substance: HEPARIN SODIUM
     Dosage: IN THE 15 DAYS SINCE PLACEMENT OF THE APHERESIS CATHETER
     Route: 065
  2. OLMESARTAN MEDOXOMIL. [Concomitant]
     Active Substance: OLMESARTAN MEDOXOMIL
     Dosage: 20 MG DAILY
     Route: 065
  3. ARGATROBAN. [Suspect]
     Active Substance: ARGATROBAN
     Dosage: 0.5 MICROG/KG/MIN
     Route: 041
  4. ASPIRIN. [Concomitant]
     Active Substance: ASPIRIN
     Dosage: 81 MG DAILY
     Route: 065
  5. ACTIVASE [Suspect]
     Active Substance: ALTEPLASE
     Dosage: 250ML OF 0.2-MG/ML
  6. FUROSEMIDE. [Concomitant]
     Active Substance: FUROSEMIDE
     Route: 065
  7. ENOXAPARIN SODIUM. [Suspect]
     Active Substance: ENOXAPARIN SODIUM
     Route: 058
  8. POTASSIUM CHLORIDE. [Concomitant]
     Active Substance: POTASSIUM CHLORIDE
     Dosage: 20 MEQ DAILY
     Route: 065
  9. PRAVASTATIN [Concomitant]
     Active Substance: PRAVASTATIN\PRAVASTATIN SODIUM
     Dosage: 40 MG DAILY
     Route: 065

REACTIONS (3)
  - Pulmonary embolism [Unknown]
  - Epistaxis [Recovered/Resolved]
  - Superior vena cava syndrome [Recovered/Resolved with Sequelae]
